FAERS Safety Report 25115436 (Version 1)
Quarter: 2025Q1

REPORT INFORMATION
  Report Type: Spontaneous
  Country: US (occurrence: US)
  Receive Date: 20250324
  Receipt Date: 20250324
  Transmission Date: 20250408
  Serious: Yes (Other)
  Sender: BRISTOL-MYERS SQUIBB COMPANY
  Company Number: US-BRISTOL-MYERS SQUIBB COMPANY-2025-042638

PATIENT
  Age: 67 Year
  Sex: Female

DRUGS (1)
  1. ELIQUIS [Suspect]
     Active Substance: APIXABAN
     Indication: Product used for unknown indication
     Route: 048

REACTIONS (7)
  - Hand fracture [Unknown]
  - Myocardial infarction [Unknown]
  - Dyspnoea [Unknown]
  - Diabetes mellitus [Unknown]
  - Hypoacusis [Unknown]
  - Cataract [Unknown]
  - Gallbladder disorder [Unknown]
